FAERS Safety Report 6527371-4 (Version None)
Quarter: 2009Q4

REPORT INFORMATION
  Report Type: 
  Country: None (occurrence: None)
  Receive Date: 20091230
  Receipt Date: 20091230
  Transmission Date: 20100525
  Serious: No
  Sender: FDA-Public Use
  Company Number: None

PATIENT
  Age: 43 Year
  Sex: Female
  Weight: 74.8435 kg

DRUGS (1)
  1. COLD REMEDY GEL SWABS [Suspect]
     Dosage: QID - SPORADIC USE (YEARS AGO-ABOUT A YR AGO)

REACTIONS (1)
  - HYPOSMIA [None]
